FAERS Safety Report 7883384-1 (Version None)
Quarter: 2011Q4

REPORT INFORMATION
  Report Type: 
  Country: None (occurrence: None)
  Receive Date: 20111102
  Receipt Date: 20111102
  Transmission Date: 20120403
  Serious: Yes (Life-Threatening, Hospitalization)
  Sender: FDA-Public Use
  Company Number: None

PATIENT
  Age: 85 Year
  Sex: Female
  Weight: 58.967 kg

DRUGS (1)
  1. CARBOCAINE W/ NEO-COBEFRIN [Suspect]
     Indication: LOCAL ANAESTHESIA
     Route: 002
     Dates: start: 20110728, end: 20110728

REACTIONS (4)
  - ANXIETY [None]
  - TREMOR [None]
  - MYOCARDIAL INFARCTION [None]
  - ASTHENIA [None]
